FAERS Safety Report 17078139 (Version 1)
Quarter: 2019Q4

REPORT INFORMATION
  Report Type: Spontaneous
  Country: US (occurrence: US)
  Receive Date: 20191126
  Receipt Date: 20191126
  Transmission Date: 20200122
  Serious: Yes (Other)
  Sender: FDA-Public Use
  Company Number: US-PFM-2019-14401

PATIENT

DRUGS (2)
  1. PROPYLTHIOURACIL. [Suspect]
     Active Substance: PROPYLTHIOURACIL
     Indication: FOETAL EXPOSURE DURING PREGNANCY
     Dosage: 200 MG, BID (2/DAY)
     Route: 064
  2. PROPRANOLOL [Suspect]
     Active Substance: PROPRANOLOL HYDROCHLORIDE
     Indication: FOETAL EXPOSURE DURING PREGNANCY
     Dosage: 40 MG, TID (3/DAY)
     Route: 064

REACTIONS (3)
  - Foetal exposure during pregnancy [Unknown]
  - Goitre congenital [Unknown]
  - Congenital hyperextension of spine [Unknown]
